FAERS Safety Report 9915982 (Version 1)
Quarter: 2014Q1

REPORT INFORMATION
  Report Type: Spontaneous
  Country: US (occurrence: None)
  Receive Date: 20140219
  Receipt Date: 20140219
  Transmission Date: 20141002
  Serious: Yes (Hospitalization)
  Sender: FDA-Public Use
  Company Number: 2014AP001235

PATIENT
  Age: 61 Year
  Sex: Female

DRUGS (1)
  1. GABAPENTIN [Suspect]

REACTIONS (7)
  - Neurotoxicity [None]
  - Diabetic ketoacidosis [None]
  - Convulsion [None]
  - Somnolence [None]
  - Fluid overload [None]
  - Mental status changes [None]
  - Toxicity to various agents [None]
